FAERS Safety Report 8848565 (Version 2)
Quarter: 2013Q1

REPORT INFORMATION
  Report Type: Spontaneous
  Country: US (occurrence: US)
  Receive Date: 20121018
  Receipt Date: 20130215
  Transmission Date: 20140127
  Serious: Yes (Death, Hospitalization)
  Sender: FDA-Public Use
  Company Number: US-GLAXOSMITHKLINE-A0997858A

PATIENT
  Age: 47 Year
  Sex: Male

DRUGS (6)
  1. VOTRIENT [Suspect]
     Indication: METASTATIC RENAL CELL CARCINOMA
     Dosage: 200MG UNKNOWN
     Route: 048
     Dates: start: 20120808, end: 20121010
  2. GABAPENTIN [Concomitant]
  3. MEDROL [Concomitant]
  4. MORPHINE SULFATE IMMEDIATE RELEASE [Concomitant]
  5. MORPHINE EXTENDED RELIEF [Concomitant]
  6. DEXAMETHASONE [Concomitant]

REACTIONS (8)
  - Pneumonia [Fatal]
  - Metastatic renal cell carcinoma [Fatal]
  - Disease progression [Fatal]
  - Ill-defined disorder [Unknown]
  - Pyrexia [Unknown]
  - Blister [Unknown]
  - Pain in extremity [Unknown]
  - Palmar-plantar erythrodysaesthesia syndrome [Unknown]
